FAERS Safety Report 8419495-1 (Version None)
Quarter: 2012Q2

REPORT INFORMATION
  Report Type: 
  Country: None (occurrence: None)
  Receive Date: 20120607
  Receipt Date: 20120604
  Transmission Date: 20120825
  Serious: No
  Sender: FDA-Public Use
  Company Number: US-ASTRAZENECA-2012SE37417

PATIENT
  Age: 71 Year
  Sex: Male

DRUGS (1)
  1. ACCOLATE [Suspect]
     Dosage: GENERIC
     Route: 048

REACTIONS (2)
  - DYSPNOEA [None]
  - DRUG INEFFECTIVE [None]
